FAERS Safety Report 8151180-6 (Version None)
Quarter: 2012Q1

REPORT INFORMATION
  Report Type: 
  Country: None (occurrence: None)
  Receive Date: 20120220
  Receipt Date: 20120217
  Transmission Date: 20120608
  Serious: Yes (Hospitalization)
  Sender: FDA-Public Use
  Company Number: GB-GLAXOSMITHKLINE-Z0010648B

PATIENT
  Sex: Female
  Weight: 79.1 kg

DRUGS (3)
  1. CAPECITABINE [Suspect]
     Indication: BREAST CANCER METASTATIC
     Dosage: 2000MGM2 CYCLIC
     Route: 048
     Dates: start: 20110630
  2. OMEPRAZOLE [Concomitant]
     Indication: PROPHYLAXIS
     Dosage: 20MG PER DAY
     Route: 048
     Dates: start: 20110809
  3. LAPATINIB [Suspect]
     Indication: BREAST CANCER METASTATIC
     Dosage: 1250MG PER DAY
     Route: 048
     Dates: start: 20110630

REACTIONS (5)
  - LOCALISED INFECTION [None]
  - FATIGUE [None]
  - DIARRHOEA [None]
  - PHARYNGITIS [None]
  - HAEMOGLOBIN DECREASED [None]
